FAERS Safety Report 19258724 (Version 4)
Quarter: 2021Q4

REPORT INFORMATION
  Report Type: Report from Study
  Country: US (occurrence: None)
  Receive Date: 20210514
  Receipt Date: 20211210
  Transmission Date: 20220303
  Serious: Yes (Death)
  Sender: FDA-Public Use
  Company Number: US-ROCHE-2826383

PATIENT
  Age: 36 Year
  Sex: Male
  Weight: 101.9 kg

DRUGS (11)
  1. OBINUTUZUMAB [Suspect]
     Active Substance: OBINUTUZUMAB
     Indication: Chronic lymphocytic leukaemia
     Dosage: ON DAY 1, CYCLE 1
     Route: 042
     Dates: start: 20200721, end: 20201215
  2. OBINUTUZUMAB [Suspect]
     Active Substance: OBINUTUZUMAB
     Dosage: ON DAY 2, CYCLE 1
     Route: 042
     Dates: start: 20200721, end: 20201215
  3. OBINUTUZUMAB [Suspect]
     Active Substance: OBINUTUZUMAB
     Dosage: ON DAY 8, CYCLE 1
     Route: 042
     Dates: start: 20200721, end: 20201215
  4. OBINUTUZUMAB [Suspect]
     Active Substance: OBINUTUZUMAB
     Dosage: DAY 15, CYCLE 1
     Route: 042
     Dates: start: 20200721, end: 20201215
  5. IBRUTINIB [Suspect]
     Active Substance: IBRUTINIB
     Indication: Chronic lymphocytic leukaemia
     Dosage: ON DAYS 1-28, CYCLES 1-19
     Route: 048
     Dates: start: 20200728, end: 20210323
  6. VENETOCLAX [Suspect]
     Active Substance: VENETOCLAX
     Indication: Chronic lymphocytic leukaemia
     Dosage: 20 MG PO QD DAYS 1-7 CYCLE 3
     Route: 048
     Dates: start: 20200922, end: 20210321
  7. VENETOCLAX [Suspect]
     Active Substance: VENETOCLAX
     Dosage: 100 MG PO QD DAYS 15-21, CYCLE 3
     Route: 048
  8. VENETOCLAX [Suspect]
     Active Substance: VENETOCLAX
     Dosage: 50 MG PO QD DAYS 8-14, CYCLE 3
     Route: 048
  9. VENETOCLAX [Suspect]
     Active Substance: VENETOCLAX
     Dosage: 200 MG PO QD DAYS 22-28, CYCLE 3
     Route: 048
  10. VENETOCLAX [Suspect]
     Active Substance: VENETOCLAX
     Dosage: 400 MG PO QD DAYS 1-28, CYCLES 4-14 CYCLE = 28 DAYS
     Route: 048
  11. COVID-19 VACCINE NOS [Concomitant]
     Active Substance: COVID-19 VACCINE NOS

REACTIONS (2)
  - COVID-19 [Fatal]
  - Sepsis [Fatal]

NARRATIVE: CASE EVENT DATE: 20210323
